FAERS Safety Report 4859656-1 (Version None)
Quarter: 2005Q4

REPORT INFORMATION
  Report Type: 
  Country: None (occurrence: None)
  Receive Date: 20051215
  Receipt Date: 20051129
  Transmission Date: 20060501
  Serious: Yes (Other)
  Sender: FDA-Public Use
  Company Number: CHNY2005CA02362

PATIENT
  Age: 57 Year
  Sex: Female

DRUGS (4)
  1. BUCKLEY'S (DM) (NCH) (DEXTROMETHORPHAN HYDROBROMIDE) SYRUP [Suspect]
     Indication: COUGH
     Dosage: 2 TSP, BID; ORAL, 2 TSP, QD; ORAL
     Route: 048
     Dates: start: 20051127
  2. BUCKLEY'S (DM) (NCH) (DEXTROMETHORPHAN HYDROBROMIDE) SYRUP [Suspect]
     Indication: COUGH
     Dosage: 2 TSP, BID; ORAL, 2 TSP, QD; ORAL
     Route: 048
     Dates: start: 20051128
  3. SYNTHROID [Concomitant]
  4. ACETAMINOPHEN [Concomitant]

REACTIONS (4)
  - CHEST DISCOMFORT [None]
  - CHOKING SENSATION [None]
  - DYSPNOEA [None]
  - THROAT TIGHTNESS [None]
